FAERS Safety Report 25299436 (Version 1)
Quarter: 2025Q2

REPORT INFORMATION
  Report Type: Spontaneous
  Country: US (occurrence: US)
  Receive Date: 20250512
  Receipt Date: 20250512
  Transmission Date: 20250716
  Serious: Yes (Other)
  Sender: LEGACY PHARMACEUTICAL PACKAGING
  Company Number: US-LEGACY PHARMA INC. SEZC-LGP202504-000147

PATIENT
  Age: 59 Year
  Sex: Male

DRUGS (3)
  1. AZATHIOPRINE [Suspect]
     Active Substance: AZATHIOPRINE
     Indication: Lung transplant
     Route: 065
  2. PREDNISONE [Concomitant]
     Active Substance: PREDNISONE
     Indication: Lung transplant
  3. TACROLIMUS [Concomitant]
     Active Substance: TACROLIMUS
     Indication: Lung transplant

REACTIONS (3)
  - Pneumatosis intestinalis [Recovered/Resolved]
  - Pneumoperitoneum [Recovered/Resolved]
  - Product use in unapproved indication [Unknown]
